FAERS Safety Report 8156256-5 (Version None)
Quarter: 2012Q1

REPORT INFORMATION
  Report Type: 
  Country: None (occurrence: None)
  Receive Date: 20120214
  Receipt Date: 20120214
  Transmission Date: 20120608
  Serious: Yes (Hospitalization)
  Sender: FDA-Public Use
  Company Number: None

PATIENT
  Sex: Female
  Weight: 76.6579 kg

DRUGS (1)
  1. LUCENTIS [Suspect]
     Dosage: MONTHLY INTRAVITREAL
     Dates: start: 20100814, end: 20120105

REACTIONS (4)
  - MYOCARDIAL INFARCTION [None]
  - COMA [None]
  - CEREBROVASCULAR ACCIDENT [None]
  - CONVULSION [None]
